FAERS Safety Report 5914404-9 (Version None)
Quarter: 2008Q4

REPORT INFORMATION
  Report Type: 
  Country: None (occurrence: None)
  Receive Date: 20081009
  Receipt Date: 20081001
  Transmission Date: 20090506
  Serious: Yes (Other)
  Sender: FDA-Public Use
  Company Number: ES-AMGEN-US311563

PATIENT
  Age: 39 Year
  Sex: Male

DRUGS (5)
  1. ENBREL [Suspect]
     Indication: PSORIATIC ARTHROPATHY
     Route: 065
     Dates: start: 20061122, end: 20080205
  2. OMEPRAZOLE [Concomitant]
     Route: 065
     Dates: start: 20061122
  3. ZYLORIC [Concomitant]
     Route: 065
     Dates: start: 20061122
  4. ZAMENE [Concomitant]
     Dosage: ^1/4 OR 1/2 ONCE PER DAY^
     Route: 065
     Dates: start: 20061122
  5. NAPROSYN [Concomitant]
     Dosage: ^500 MG OR 1 G PER DAY^
     Route: 065
     Dates: start: 20061122

REACTIONS (6)
  - APHTHOUS STOMATITIS [None]
  - CONDITION AGGRAVATED [None]
  - ERYTHEMA [None]
  - INFLAMMATION [None]
  - ODYNOPHAGIA [None]
  - PSORIASIS [None]
